FAERS Safety Report 4521315-2 (Version None)
Quarter: 2004Q4

REPORT INFORMATION
  Report Type: 
  Country: None (occurrence: None)
  Receive Date: 20041208
  Receipt Date: 20041022
  Transmission Date: 20050328
  Serious: Yes (Other)
  Sender: FDA-Public Use
  Company Number: PHBS2004JP14253

PATIENT
  Age: 73 Year
  Sex: Male

DRUGS (10)
  1. DIOVAN [Suspect]
     Dosage: 80 MG, QD
     Route: 048
     Dates: end: 20040428
  2. SIGMART [Concomitant]
     Dosage: 15 MG, UNK
     Route: 048
  3. URSODEOXYCHOLIC ACID [Concomitant]
     Dosage: 3 DF, UNK
     Route: 048
  4. COSPANON [Concomitant]
     Dosage: 3 DF, UNK
     Route: 048
  5. FAMOTIDINE [Concomitant]
     Dosage: 40 MG, UNK
     Route: 048
  6. RYTHMODAN [Concomitant]
     Dosage: 300 MG, UNK
     Route: 048
  7. LUVOX [Concomitant]
     Dosage: 50 MG, UNK
     Route: 048
  8. LENDORMIN [Concomitant]
     Dosage: 250 UG, UNK
     Route: 048
  9. BAYASPIRIN [Concomitant]
     Dosage: 100 MG, UNK
     Route: 048
  10. NORVASC [Concomitant]
     Dosage: 5 MG, UNK
     Route: 048

REACTIONS (7)
  - CEREBRAL ATROPHY [None]
  - CEREBRAL INFARCTION [None]
  - DELIRIUM [None]
  - DEMENTIA [None]
  - FORMICATION [None]
  - HALLUCINATION, VISUAL [None]
  - ILLUSION [None]
